FAERS Safety Report 9917966 (Version 4)
Quarter: 2014Q1

REPORT INFORMATION
  Report Type: Report from Study
  Country: CA (occurrence: CA)
  Receive Date: 20140222
  Receipt Date: 20140324
  Transmission Date: 20141002
  Serious: Yes (Hospitalization, Other)
  Sender: FDA-Public Use
  Company Number: CA-BRISTOL-MYERS SQUIBB COMPANY-19933118

PATIENT
  Age: 80 Year
  Sex: Female

DRUGS (8)
  1. ORENCIA [Suspect]
     Indication: RHEUMATOID ARTHRITIS
     Dosage: 1 DF : 500 UNITS NOS.?B.NO.:3H65580, EXP.DATE:JUL- 2016.?B.NO.:3J75953,EXP.DATE:JUL- 2016.
     Dates: start: 20130624
  2. METHOTREXATE [Suspect]
  3. FISH OIL [Concomitant]
  4. VITAMIN D [Concomitant]
  5. MULTIVITAMIN [Concomitant]
  6. ACTONEL [Concomitant]
  7. CALCIUM [Concomitant]
  8. COVERSYL [Concomitant]
     Dosage: DOSE INCREASED TO 8MG.
     Route: 048
     Dates: start: 20131210

REACTIONS (10)
  - Pulmonary embolism [Recovering/Resolving]
  - Thyroid neoplasm [Unknown]
  - Clostridium difficile infection [Recovered/Resolved]
  - Hypertension [Unknown]
  - Chest discomfort [Unknown]
  - Dyspnoea [Unknown]
  - Smear cervix abnormal [Unknown]
  - Sinus congestion [Unknown]
  - Respiratory tract congestion [Unknown]
  - Lower respiratory tract infection [Unknown]
